FAERS Safety Report 6979466-9 (Version None)
Quarter: 2010Q3

REPORT INFORMATION
  Report Type: 
  Country: None (occurrence: None)
  Receive Date: 20100910
  Receipt Date: 20100910
  Transmission Date: 20110219
  Serious: Yes (Life-Threatening)
  Sender: FDA-Public Use
  Company Number: None

PATIENT
  Sex: Male
  Weight: 71.2147 kg

DRUGS (2)
  1. FENTANYL [Suspect]
     Indication: BACK PAIN
     Dosage: 100 MCG/H 1 PATCH EVERY 2 DAYS (LATE 1990'S TO PRESENT)
  2. FENTANYL [Suspect]
     Indication: NEURALGIA
     Dosage: 100 MCG/H 1 PATCH EVERY 2 DAYS (LATE 1990'S TO PRESENT)

REACTIONS (5)
  - DISORIENTATION [None]
  - DIZZINESS [None]
  - HYPERHIDROSIS [None]
  - LETHARGY [None]
  - OVERDOSE [None]
